FAERS Safety Report 15557190 (Version 3)
Quarter: 2019Q1

REPORT INFORMATION
  Report Type: Spontaneous
  Country: US (occurrence: US)
  Receive Date: 20181026
  Receipt Date: 20190123
  Transmission Date: 20190417
  Serious: Yes (Hospitalization, Other)
  Sender: FDA-Public Use
  Company Number: US-GLAXOSMITHKLINE-US2018GSK195477

PATIENT
  Sex: Female

DRUGS (4)
  1. LAMICTAL [Suspect]
     Active Substance: LAMOTRIGINE
     Indication: MAJOR DEPRESSION
  2. LAMICTAL [Suspect]
     Active Substance: LAMOTRIGINE
     Indication: DEPRESSION
     Dosage: 25 MG, UNK
     Route: 065
  3. LAMOTRIGINE. [Suspect]
     Active Substance: LAMOTRIGINE
     Indication: DEPRESSION
     Dosage: 25 MG, UNK
     Route: 065
  4. LAMICTAL [Suspect]
     Active Substance: LAMOTRIGINE
     Indication: DEPRESSION
     Dosage: 200 MG, QD
     Route: 048

REACTIONS (23)
  - Rash [Unknown]
  - Skin hyperpigmentation [Unknown]
  - Urticaria [Unknown]
  - Anaphylactic reaction [Unknown]
  - Hypersensitivity [Unknown]
  - Swelling face [Unknown]
  - Rash erythematous [Unknown]
  - Photophobia [Unknown]
  - Rash maculo-papular [Unknown]
  - Lip swelling [Unknown]
  - Dry skin [Unknown]
  - Pruritus [Unknown]
  - Adverse drug reaction [Unknown]
  - Dermatitis contact [Unknown]
  - Skin lesion [Unknown]
  - Angioedema [Unknown]
  - Infected dermal cyst [Unknown]
  - Papule [Unknown]
  - Erythema multiforme [Unknown]
  - Eye pain [Unknown]
  - Stevens-Johnson syndrome [Unknown]
  - Rash generalised [Unknown]
  - Genital herpes [Unknown]
